FAERS Safety Report 5322474-4 (Version None)
Quarter: 2007Q2

REPORT INFORMATION
  Report Type: 
  Country: None (occurrence: None)
  Receive Date: 20070511
  Receipt Date: 20070430
  Transmission Date: 20071010
  Serious: Yes (Hospitalization)
  Sender: FDA-Public Use
  Company Number: GB-BRISTOL-MYERS SQUIBB COMPANY-13775218

PATIENT
  Age: 46 Year
  Sex: Female

DRUGS (4)
  1. CETUXIMAB [Suspect]
     Indication: RECTAL CANCER
     Route: 042
     Dates: start: 20061030
  2. ELOXATIN [Suspect]
     Indication: RECTAL CANCER
     Route: 042
     Dates: start: 20061030
  3. XELODA [Suspect]
     Indication: RECTAL CANCER
     Route: 048
     Dates: start: 20061030
  4. RADIATION THERAPY [Suspect]
     Indication: RECTAL CANCER

REACTIONS (4)
  - COUGH [None]
  - DYSPNOEA [None]
  - PYREXIA [None]
  - RESPIRATORY TRACT INFECTION [None]
